FAERS Safety Report 5703714-6 (Version None)
Quarter: 2008Q2

REPORT INFORMATION
  Report Type: 
  Country: None (occurrence: None)
  Receive Date: 20080413
  Receipt Date: 20080404
  Transmission Date: 20081010
  Serious: Yes (Hospitalization)
  Sender: FDA-Public Use
  Company Number: PHRM2008FR01209

PATIENT
  Age: 57 Year
  Sex: Female

DRUGS (1)
  1. ZOMETA [Suspect]
     Indication: MULTIPLE MYELOMA
     Dosage: UNK, UNK
     Route: 042
     Dates: start: 20030501, end: 20050901

REACTIONS (5)
  - DEBRIDEMENT [None]
  - OSTEITIS [None]
  - OSTEONECROSIS [None]
  - TOOTH EXTRACTION [None]
  - TOOTHACHE [None]
